FAERS Safety Report 13294205 (Version 1)
Quarter: 2017Q1

REPORT INFORMATION
  Report Type: Spontaneous
  Country: US (occurrence: US)
  Receive Date: 20170303
  Receipt Date: 20170303
  Transmission Date: 20170428
  Serious: Yes (Hospitalization)
  Sender: FDA-Public Use
  Company Number: US-LUNDBECK-DKLU2027003

PATIENT
  Age: 72 Year
  Sex: Male

DRUGS (1)
  1. NORTHERA [Suspect]
     Active Substance: DROXIDOPA
     Indication: PARKINSON^S DISEASE
     Route: 048
     Dates: start: 2015

REACTIONS (9)
  - Functional gastrointestinal disorder [Unknown]
  - Fall [Recovered/Resolved with Sequelae]
  - Abnormal behaviour [Unknown]
  - Hypersomnia [Unknown]
  - Subdural haematoma [Recovered/Resolved]
  - Presyncope [Unknown]
  - Bladder dysfunction [Unknown]
  - Fatigue [Unknown]
  - Confusional state [Unknown]

NARRATIVE: CASE EVENT DATE: 201603
